FAERS Safety Report 8724683 (Version 3)
Quarter: 2012Q4

REPORT INFORMATION
  Report Type: Report from Study
  Country: US (occurrence: US)
  Receive Date: 20120815
  Receipt Date: 20121213
  Transmission Date: 20130627
  Serious: Yes (Hospitalization)
  Sender: FDA-Public Use
  Company Number: US-ROCHE-1042374

PATIENT
  Age: 63 Year
  Sex: Female
  Weight: 60.84 kg

DRUGS (7)
  1. ZELBORAF [Suspect]
     Indication: MALIGNANT MELANOMA
     Route: 048
     Dates: start: 20111226, end: 20120104
  2. ZELBORAF [Suspect]
     Route: 048
     Dates: start: 201202
  3. ZELBORAF [Suspect]
     Dosage: therapy for 36 days
     Route: 048
  4. ZELBORAF [Suspect]
     Route: 048
     Dates: start: 20120611
  5. AMBIEN [Concomitant]
  6. MULTIVITAMIN [Concomitant]
  7. TYLENOL [Concomitant]

REACTIONS (14)
  - Pericarditis [Recovered/Resolved]
  - Skin exfoliation [Recovered/Resolved]
  - Arthralgia [Recovered/Resolved with Sequelae]
  - Rash [Recovered/Resolved with Sequelae]
  - Mass [Unknown]
  - Chills [Unknown]
  - Alopecia [Unknown]
  - Swelling face [Recovered/Resolved]
  - Rash erythematous [Unknown]
  - Pruritus [Unknown]
  - Erythema [Recovered/Resolved]
  - Madarosis [Unknown]
  - Pruritus [Unknown]
  - Myalgia [Unknown]
